FAERS Safety Report 5080472-2 (Version None)
Quarter: 2006Q3

REPORT INFORMATION
  Report Type: 
  Country: None (occurrence: None)
  Receive Date: 20060815
  Receipt Date: 20001116
  Transmission Date: 20061208
  Serious: Yes (Hospitalization)
  Sender: FDA-Public Use
  Company Number: FR-SOLVAY-00200006824

PATIENT
  Age: 24539 Day
  Sex: Male

DRUGS (4)
  1. ACETYLSALICYLIC ACID SRT [Concomitant]
     Indication: ILL-DEFINED DISORDER
     Dosage: DAILY DOSE: UNK.
     Route: 065
     Dates: start: 20001029, end: 20001112
  2. PERINDOPRIL ERBUMINE [Suspect]
     Indication: MYOCARDIAL INFARCTION
     Dosage: DAILY DOSE: UNK.
     Route: 048
     Dates: start: 20001110, end: 20001112
  3. SIMVACOR [Concomitant]
     Indication: ILL-DEFINED DISORDER
     Dosage: DAILY DOSE: UNK.
     Route: 065
     Dates: start: 20001024
  4. FELODIPINE [Concomitant]
     Indication: ILL-DEFINED DISORDER
     Dosage: DAILY DOSE: UNK.
     Route: 065
     Dates: start: 20001115

REACTIONS (3)
  - AORTIC ANEURYSM [None]
  - FACE OEDEMA [None]
  - TONGUE OEDEMA [None]
